FAERS Safety Report 16722014 (Version 1)
Quarter: 2019Q3

REPORT INFORMATION
  Report Type: Spontaneous
  Country: US (occurrence: US)
  Receive Date: 20190820
  Receipt Date: 20190820
  Transmission Date: 20191005
  Serious: No
  Sender: FDA-Public Use
  Company Number: US-X-GEN PHARMACEUTICALS, INC-2073396

PATIENT

DRUGS (1)
  1. STREPTOMYCIN [Suspect]
     Active Substance: STREPTOMYCIN SULFATE

REACTIONS (1)
  - Drug hypersensitivity [Unknown]
